FAERS Safety Report 6496607-0 (Version None)
Quarter: 2009Q4

REPORT INFORMATION
  Report Type: 
  Country: None (occurrence: None)
  Receive Date: 20091214
  Receipt Date: 20091208
  Transmission Date: 20100525
  Serious: Yes (Death)
  Sender: FDA-Public Use
  Company Number: BE-MERCK-0912BEL00006

PATIENT
  Age: 56 Year
  Sex: Female
  Weight: 68 kg

DRUGS (5)
  1. CANCIDAS [Suspect]
     Indication: FUNGAL INFECTION
     Route: 041
     Dates: start: 20090928, end: 20090928
  2. CANCIDAS [Suspect]
     Route: 041
     Dates: start: 20090929, end: 20091022
  3. POSACONAZOLE [Concomitant]
     Route: 048
     Dates: start: 20090924, end: 20091022
  4. AMPHOTERICIN B AND CHOLESTEROL AND DISTEAROYLPHOSPHATIDYLGLYCEROL AND [Concomitant]
     Route: 041
     Dates: start: 20091023, end: 20091108
  5. VORICONAZOLE [Concomitant]
     Route: 041
     Dates: start: 20091102, end: 20091108

REACTIONS (3)
  - BACTERIAL INFECTION [None]
  - FUNGAL INFECTION [None]
  - ORGAN FAILURE [None]
